FAERS Safety Report 7234162-8 (Version None)
Quarter: 2011Q1

REPORT INFORMATION
  Report Type: 
  Country: None (occurrence: None)
  Receive Date: 20110119
  Receipt Date: 20110118
  Transmission Date: 20110831
  Serious: No
  Sender: FDA-Public Use
  Company Number: US-PFIZER INC-US-WYE-H14301310

PATIENT
  Sex: Female

DRUGS (2)
  1. PREGABALIN [Suspect]
     Dosage: UNKNOWN
     Route: 065
  2. PREMARIN [Suspect]
     Dosage: UNKNOWN
     Route: 065

REACTIONS (2)
  - WEIGHT INCREASED [None]
  - HUNGER [None]
